FAERS Safety Report 7573529-5 (Version None)
Quarter: 2011Q2

REPORT INFORMATION
  Report Type: 
  Country: None (occurrence: None)
  Receive Date: 20110627
  Receipt Date: 20110614
  Transmission Date: 20111010
  Serious: Yes (Other)
  Sender: FDA-Public Use
  Company Number: PHHY2011US52777

PATIENT
  Sex: Female

DRUGS (1)
  1. RECLAST [Suspect]
     Dosage: UNK
     Route: 042
     Dates: start: 20100901

REACTIONS (5)
  - TONGUE ULCERATION [None]
  - EATING DISORDER [None]
  - GLOSSODYNIA [None]
  - WEIGHT DECREASED [None]
  - ORAL PAIN [None]
